FAERS Safety Report 21530030 (Version 2)
Quarter: 2022Q4

REPORT INFORMATION
  Report Type: Report from Study
  Country: DE (occurrence: DE)
  Receive Date: 20221031
  Receipt Date: 20221118
  Transmission Date: 20230113
  Serious: Yes (Other)
  Sender: FDA-Public Use
  Company Number: DE-AMGEN-DEUNI2022185277

PATIENT
  Age: 42 Year
  Sex: Female

DRUGS (6)
  1. SOTORASIB [Suspect]
     Active Substance: SOTORASIB
     Indication: Non-small cell lung cancer stage III
     Dosage: UNK
     Route: 065
     Dates: start: 202105, end: 202201
  2. SOTORASIB [Suspect]
     Active Substance: SOTORASIB
     Indication: K-ras gene mutation
  3. CARBOPLATIN [Concomitant]
     Active Substance: CARBOPLATIN
     Dosage: UNK
     Dates: start: 20220120
  4. PACLITAXEL [Concomitant]
     Active Substance: PACLITAXEL
     Dosage: UNK
     Dates: start: 20220120
  5. NIVOLUMAB [Concomitant]
     Active Substance: NIVOLUMAB
     Dosage: 360 MG, D1 + 22) QD 43 UNTIL PROGRESSION
     Route: 065
     Dates: start: 20220120
  6. IPILIMUMAB [Concomitant]
     Active Substance: IPILIMUMAB
     Dosage: 1 MILLIGRAM/KILOGRAM, DAY 1
     Route: 065
     Dates: start: 20220120

REACTIONS (1)
  - Non-small cell lung cancer [Recovered/Resolved]

NARRATIVE: CASE EVENT DATE: 20211228
